FAERS Safety Report 16454379 (Version 1)
Quarter: 2019Q2

REPORT INFORMATION
  Report Type: Spontaneous
  Country: GB (occurrence: GB)
  Receive Date: 20190620
  Receipt Date: 20190620
  Transmission Date: 20190711
  Serious: Yes (Other)
  Sender: FDA-Public Use
  Company Number: GB-CIPLA LTD.-2019GB04509

PATIENT

DRUGS (4)
  1. ROACCUTANE [Suspect]
     Active Substance: ISOTRETINOIN
     Indication: ACNE
     Dosage: 30 MILLIGRAM, PER DAY
     Route: 048
     Dates: start: 20171224, end: 20181208
  2. INHALERS [Concomitant]
     Active Substance: UNSPECIFIED INGREDIENT
     Indication: PRODUCT USED FOR UNKNOWN INDICATION
     Dosage: UNK, BLUE AND BROWN INHALER
     Route: 065
  3. EPIDUO [Concomitant]
     Active Substance: ADAPALENE\BENZOYL PEROXIDE
     Indication: PRODUCT USED FOR UNKNOWN INDICATION
     Dosage: UNK
     Route: 065
  4. CETIRIZINE [Suspect]
     Active Substance: CETIRIZINE HYDROCHLORIDE
     Indication: DRY SKIN
     Dosage: 1 DOSAGE FORM, PER DAY
     Route: 065

REACTIONS (10)
  - Eczema [Not Recovered/Not Resolved]
  - Intrusive thoughts [Not Recovered/Not Resolved]
  - Condition aggravated [Unknown]
  - Libido decreased [Recovered/Resolved]
  - Depressed mood [Recovering/Resolving]
  - Depression suicidal [Recovering/Resolving]
  - Obsessive-compulsive disorder [Not Recovered/Not Resolved]
  - Pruritus [Not Recovered/Not Resolved]
  - Erectile dysfunction [Recovered/Resolved]
  - Dry eye [Recovered/Resolved with Sequelae]

NARRATIVE: CASE EVENT DATE: 201801
